FAERS Safety Report 7701731-8 (Version None)
Quarter: 2011Q3

REPORT INFORMATION
  Report Type: 
  Country: None (occurrence: None)
  Receive Date: 20110822
  Receipt Date: 20110815
  Transmission Date: 20111222
  Serious: Yes (Other)
  Sender: FDA-Public Use
  Company Number: US-PFIZER INC-2010096542

PATIENT
  Sex: Male
  Weight: 90.703 kg

DRUGS (6)
  1. SUTENT [Suspect]
     Indication: RENAL CELL CARCINOMA
     Dosage: 50 MG, 1X/DAY
     Route: 048
     Dates: start: 20100201
  2. NABUMETONE [Concomitant]
     Dosage: 500 MG, UNK
  3. METOPROLOL [Concomitant]
     Dosage: 100 MG, UNK
  4. CYCLOBENZAPRINE [Concomitant]
     Dosage: 10 MG, UNK
  5. PRAVASTATIN [Concomitant]
     Indication: BLOOD CHOLESTEROL INCREASED
     Dosage: UNK
  6. CLONAZEPAM [Concomitant]
     Dosage: 0.5 MG, UNK

REACTIONS (3)
  - GASTROINTESTINAL DISORDER [None]
  - CEREBROVASCULAR ACCIDENT [None]
  - ARTERIAL OCCLUSIVE DISEASE [None]
